FAERS Safety Report 18045974 (Version 1)
Quarter: 2020Q3

REPORT INFORMATION
  Report Type: Spontaneous
  Country: US (occurrence: US)
  Receive Date: 20200720
  Receipt Date: 20200720
  Transmission Date: 20201103
  Serious: Yes (Other)
  Sender: FDA-Public Use
  Company Number: US-PURDUE-USA-2020-0157816

PATIENT

DRUGS (2)
  1. VALIUM [Suspect]
     Active Substance: DIAZEPAM
     Indication: PRODUCT USED FOR UNKNOWN INDICATION
     Dosage: UNK
     Route: 065
  2. MORPHINE SULFATE (SIMILAR TO NDA 19?516) [Suspect]
     Active Substance: MORPHINE SULFATE
     Indication: PRODUCT USED FOR UNKNOWN INDICATION
     Dosage: UNK
     Route: 065

REACTIONS (20)
  - Diverticulitis [Unknown]
  - Dyskinesia [Not Recovered/Not Resolved]
  - Cough [Not Recovered/Not Resolved]
  - Weight decreased [Unknown]
  - Pancreatitis [Unknown]
  - Cholecystectomy [Unknown]
  - Insomnia [Not Recovered/Not Resolved]
  - Sneezing [Not Recovered/Not Resolved]
  - Dental implantation [Unknown]
  - Prosthesis implantation [Unknown]
  - Suicidal ideation [Not Recovered/Not Resolved]
  - Back injury [Unknown]
  - Anxiety [Not Recovered/Not Resolved]
  - Ageusia [Not Recovered/Not Resolved]
  - Mood swings [Not Recovered/Not Resolved]
  - Neck crushing [Unknown]
  - Paraesthesia [Not Recovered/Not Resolved]
  - Pain [Not Recovered/Not Resolved]
  - Drug dependence [Not Recovered/Not Resolved]
  - Mood altered [Not Recovered/Not Resolved]
